FAERS Safety Report 25982855 (Version 1)
Quarter: 2025Q4

REPORT INFORMATION
  Report Type: Report from Study
  Country: US (occurrence: US)
  Receive Date: 20251031
  Receipt Date: 20251031
  Transmission Date: 20260117
  Serious: Yes (Other)
  Sender: GILEAD
  Company Number: US-GILEAD-2025-0734087

PATIENT
  Age: 30 Year
  Sex: Female

DRUGS (1)
  1. AZTREONAM LYSINE [Suspect]
     Active Substance: AZTREONAM LYSINE
     Indication: Pseudomonas infection
     Dosage: 75 MG 3 TIMES DAILY FOR 28 DAYS, OFF 28 DAYS-PER INHALATION
     Route: 055
     Dates: start: 202112

REACTIONS (2)
  - Pseudomonas infection [Recovered/Resolved]
  - Product use in unapproved indication [Not Recovered/Not Resolved]
